FAERS Safety Report 19685804 (Version 7)
Quarter: 2021Q4

REPORT INFORMATION
  Report Type: Spontaneous
  Country: US (occurrence: US)
  Receive Date: 20210811
  Receipt Date: 20211103
  Transmission Date: 20220303
  Serious: Yes (Other)
  Sender: FDA-Public Use
  Company Number: US-ORGANON-O2108USA000719

PATIENT
  Age: 44 Year
  Sex: Female
  Weight: 113.9 kg

DRUGS (2)
  1. NEXPLANON [Suspect]
     Active Substance: ETONOGESTREL
     Indication: Menstrual cycle management
     Dosage: 1 IMPLANT FOR THREE YEARS IN LEFT UPPER ARM
     Route: 058
     Dates: start: 20200929
  2. NEXPLANON [Suspect]
     Active Substance: ETONOGESTREL
     Indication: Menstrual cycle management
     Dosage: 1 IMPLANT FOR 3 YEARS IN LEFT ARM
     Route: 059
     Dates: start: 20171010, end: 202009

REACTIONS (11)
  - Device dislocation [Unknown]
  - Heavy menstrual bleeding [Recovered/Resolved]
  - Amenorrhoea [Recovered/Resolved]
  - Anxiety [Unknown]
  - Device placement issue [Unknown]
  - Complication associated with device [Unknown]
  - Complication of device insertion [Recovered/Resolved]
  - Product quality issue [Unknown]
  - Product use in unapproved indication [Unknown]
  - Product use in unapproved indication [Unknown]
  - Product dose omission issue [Unknown]

NARRATIVE: CASE EVENT DATE: 20171001
